FAERS Safety Report 14202615 (Version 1)
Quarter: 2017Q4

REPORT INFORMATION
  Report Type: Spontaneous
  Country: US (occurrence: US)
  Receive Date: 20171118
  Receipt Date: 20171118
  Transmission Date: 20180321
  Serious: Yes (Death, Hospitalization, Other)
  Sender: FDA-Public Use
  Company Number: US-ROCHE-GNE259834

PATIENT
  Age: 29 Year
  Sex: Male
  Weight: 94 kg

DRUGS (3)
  1. TENECTEPLASE [Suspect]
     Active Substance: TENECTEPLASE
     Indication: PULMONARY EMBOLISM
     Route: 040
  2. ATROPINE. [Concomitant]
     Active Substance: ATROPINE
     Indication: RESUSCITATION
     Dosage: 1.5 MG, UNK
     Route: 065
  3. EPINEPHRINE. [Concomitant]
     Active Substance: EPINEPHRINE
     Indication: RESUSCITATION
     Dosage: 9 MG, UNK
     Route: 065

REACTIONS (5)
  - Brain death [Fatal]
  - Haemoglobin decreased [Unknown]
  - Catheter site haematoma [Fatal]
  - Intentional product use issue [Fatal]
  - Off label use [Fatal]
